FAERS Safety Report 11050391 (Version 1)
Quarter: 2015Q2

REPORT INFORMATION
  Report Type: Spontaneous
  Country: US (occurrence: None)
  Receive Date: 20150420
  Receipt Date: 20150420
  Transmission Date: 20150821
  Serious: Yes (Death, Hospitalization)
  Sender: FDA-Public Use
  Company Number: None

PATIENT
  Age: 84 Year
  Sex: Male

DRUGS (1)
  1. NORVASC [Suspect]
     Active Substance: AMLODIPINE BESYLATE
     Indication: HYPERTENSION

REACTIONS (7)
  - Transient ischaemic attack [None]
  - Renal failure [None]
  - Blood pressure increased [None]
  - Vasculitis cerebral [None]
  - Peripheral swelling [None]
  - General physical health deterioration [None]
  - Cerebral disorder [None]
